FAERS Safety Report 8162525-5 (Version None)
Quarter: 2012Q1

REPORT INFORMATION
  Report Type: 
  Country: None (occurrence: None)
  Receive Date: 20120224
  Receipt Date: 20110908
  Transmission Date: 20120608
  Serious: No
  Sender: FDA-Public Use
  Company Number: US-PFIZER INC-K201101065

PATIENT
  Sex: Male
  Weight: 121.9 kg

DRUGS (12)
  1. NITROGLYCERIN [Suspect]
     Dosage: 50 MG, 2X/DAY
  2. AMIODARONE HCL [Suspect]
     Dosage: 200 MG, 2X/DAY
  3. AZOR [Suspect]
  4. METOPROLOL TARTRATE [Suspect]
     Dosage: 50 MG, 2X/DAY
  5. ACETYLSALICYLIC ACID SRT [Suspect]
  6. LIPITOR [Suspect]
  7. DIGOXIN [Suspect]
     Dosage: 0.25 UG, 1X/DAY
  8. ATENOLOL [Suspect]
  9. CARVEDILOL [Suspect]
  10. ALTACE [Suspect]
     Dosage: 10 MG, 1X/DAY
     Route: 048
  11. NORVASC [Suspect]
     Dosage: 5 MG, 1X/DAY
  12. ZOLOFT [Suspect]
     Dosage: 100 MG, 1X/DAY

REACTIONS (7)
  - BLOOD PRESSURE INCREASED [None]
  - BACK PAIN [None]
  - LOSS OF EMPLOYMENT [None]
  - DYSPNOEA [None]
  - PAIN [None]
  - WEIGHT INCREASED [None]
  - NON-CARDIAC CHEST PAIN [None]
